FAERS Safety Report 5377015-2 (Version None)
Quarter: 2007Q2

REPORT INFORMATION
  Report Type: 
  Country: None (occurrence: None)
  Receive Date: 20070628
  Receipt Date: 20070628
  Transmission Date: 20071010
  Serious: Yes (Life-Threatening)
  Sender: FDA-Public Use
  Company Number: None

PATIENT
  Age: 54 Year
  Sex: Female
  Weight: 101.1521 kg

DRUGS (1)
  1. CARBOPLATIN [Suspect]
     Indication: NEOPLASM MALIGNANT
     Dosage: 500MG  IV
     Route: 042

REACTIONS (5)
  - CHEST DISCOMFORT [None]
  - INFUSION RELATED REACTION [None]
  - ORAL PRURITUS [None]
  - THROAT IRRITATION [None]
  - UNRESPONSIVE TO STIMULI [None]
